FAERS Safety Report 18960714 (Version 4)
Quarter: 2021Q2

REPORT INFORMATION
  Report Type: Report from Study
  Country: US (occurrence: US)
  Receive Date: 20210303
  Receipt Date: 20210616
  Transmission Date: 20210717
  Serious: No
  Sender: FDA-Public Use
  Company Number: NVSC2021US041947

PATIENT
  Sex: Female

DRUGS (5)
  1. TRAVATAN Z [Suspect]
     Active Substance: TRAVOPROST
     Indication: PRODUCT USED FOR UNKNOWN INDICATION
     Dosage: UNK
     Route: 065
  2. ILEVRO [Suspect]
     Active Substance: NEPAFENAC
     Indication: EYE HAEMORRHAGE
  3. ILEVRO [Suspect]
     Active Substance: NEPAFENAC
     Indication: GLAUCOMA
  4. ILEVRO [Suspect]
     Active Substance: NEPAFENAC
     Indication: CATARACT
     Dosage: 0.03 UNK, QD
     Route: 065
  5. SYNTHROID [Concomitant]
     Active Substance: LEVOTHYROXINE SODIUM
     Indication: PRODUCT USED FOR UNKNOWN INDICATION
     Dosage: UNK
     Route: 065

REACTIONS (5)
  - Illness [Unknown]
  - Hypersensitivity [Unknown]
  - Hypoaesthesia eye [Unknown]
  - Hypoaesthesia [Unknown]
  - Bronchitis [Unknown]
